FAERS Safety Report 5972089-X (Version None)
Quarter: 2008Q4

REPORT INFORMATION
  Report Type: 
  Country: None (occurrence: None)
  Receive Date: 20081201
  Receipt Date: 20080827
  Transmission Date: 20090506
  Serious: No
  Sender: FDA-Public Use
  Company Number: US-TEVA-170954USA

PATIENT
  Sex: Female

DRUGS (4)
  1. SALBUTAMOL SULFATE INHALATION, 0.09 MG [Suspect]
     Indication: CHRONIC OBSTRUCTIVE PULMONARY DISEASE
     Dosage: 2 PUFFS QID AND PRN
     Route: 055
     Dates: start: 20070101, end: 20080101
  2. SALBUTAMOL SULFATE INHALATION, 0.09 MG [Suspect]
     Indication: EMPHYSEMA
  3. FORMOTEROL FUMARATE [Concomitant]
  4. TIOTROPIUM BROMIDE [Concomitant]

REACTIONS (2)
  - DRUG INEFFECTIVE [None]
  - DYSPNOEA [None]
